FAERS Safety Report 10159816 (Version 1)
Quarter: 2014Q2

REPORT INFORMATION
  Report Type: Spontaneous
  Country: US (occurrence: US)
  Receive Date: 20140508
  Receipt Date: 20140508
  Transmission Date: 20141212
  Serious: No
  Sender: FDA-Public Use
  Company Number: US-GLAXOSMITHKLINE-A1032946A

PATIENT
  Age: 64 Year
  Sex: Female
  Weight: 81.8 kg

DRUGS (5)
  1. TYKERB [Suspect]
     Indication: PRODUCT USED FOR UNKNOWN INDICATION
     Dosage: 1250MG PER DAY
     Route: 048
  2. FISH OIL [Concomitant]
  3. CALCIUM [Concomitant]
  4. IRON [Concomitant]
  5. LANSOPRAZOLE [Concomitant]

REACTIONS (6)
  - Diarrhoea [Unknown]
  - Dermatitis acneiform [Unknown]
  - Dry eye [Unknown]
  - Stomatitis [Unknown]
  - Lip swelling [Unknown]
  - Lip pain [Unknown]
